FAERS Safety Report 9405310 (Version 1)
Quarter: 2013Q3

REPORT INFORMATION
  Report Type: Spontaneous
  Country: FR (occurrence: None)
  Receive Date: 20130703
  Receipt Date: 20130703
  Transmission Date: 20140515
  Serious: Yes (Other)
  Sender: FDA-Public Use
  Company Number: 2013036666

PATIENT
  Age: 45 Year
  Sex: Female

DRUGS (1)
  1. PRIVIGEN (IMMUNE GLOBULIN INTRAVENOUS (HUMAN) 10% LIQUID) [Suspect]
     Indication: MULTIPLE SCLEROSIS
     Dosage: 0.4 G/KG/D, IV
     Dates: start: 20130507, end: 20130511

REACTIONS (4)
  - Autoimmune neutropenia [None]
  - Pain [None]
  - Hypersensitivity [None]
  - Off label use [None]
